FAERS Safety Report 12157686 (Version 1)
Quarter: 2016Q1

REPORT INFORMATION
  Report Type: Spontaneous
  Country: US (occurrence: US)
  Receive Date: 20160308
  Receipt Date: 20160308
  Transmission Date: 20160526
  Serious: No
  Sender: FDA-Public Use
  Company Number: US-TAKEDA-2016TUS003666

PATIENT
  Sex: Female
  Weight: 117.91 kg

DRUGS (4)
  1. CONTRAVE [Suspect]
     Active Substance: BUPROPION HYDROCHLORIDE\NALTREXONE HYDROCHLORIDE
     Dosage: 8/90MG, QD
     Route: 048
  2. CONTRAVE [Suspect]
     Active Substance: BUPROPION HYDROCHLORIDE\NALTREXONE HYDROCHLORIDE
     Dosage: 8/90MG, QID
     Route: 048
  3. CONTRAVE [Suspect]
     Active Substance: BUPROPION HYDROCHLORIDE\NALTREXONE HYDROCHLORIDE
     Dosage: 8/90MG
     Route: 048
  4. CONTRAVE [Suspect]
     Active Substance: BUPROPION HYDROCHLORIDE\NALTREXONE HYDROCHLORIDE
     Indication: OBESITY
     Dosage: 8/90MG
     Route: 048
     Dates: start: 20151118

REACTIONS (14)
  - Tremor [Recovering/Resolving]
  - Asthenia [Recovering/Resolving]
  - Acne cystic [Recovering/Resolving]
  - Inappropriate schedule of drug administration [Unknown]
  - Insomnia [Recovering/Resolving]
  - Mood swings [Recovering/Resolving]
  - Thirst [Recovering/Resolving]
  - Feeling abnormal [Recovering/Resolving]
  - Constipation [Recovering/Resolving]
  - Thinking abnormal [Recovering/Resolving]
  - Pruritus [Recovering/Resolving]
  - Diarrhoea [Recovering/Resolving]
  - Lymphadenopathy [Recovering/Resolving]
  - Dizziness [Recovering/Resolving]
